FAERS Safety Report 9302680 (Version 1)
Quarter: 2013Q2

REPORT INFORMATION
  Report Type: Spontaneous
  Country: IE (occurrence: IE)
  Receive Date: 20130522
  Receipt Date: 20130522
  Transmission Date: 20140414
  Serious: Yes (Death)
  Sender: FDA-Public Use
  Company Number: IE-SANOFI-AVENTIS-2013SA049047

PATIENT
  Sex: Female

DRUGS (2)
  1. CLEXANE [Suspect]
     Indication: PULMONARY EMBOLISM
     Route: 065
  2. WARFARIN [Concomitant]

REACTIONS (1)
  - Lung infection [Fatal]
